FAERS Safety Report 4852725-1 (Version None)
Quarter: 2005Q4

REPORT INFORMATION
  Report Type: 
  Country: None (occurrence: None)
  Receive Date: 20051213
  Receipt Date: 20050503
  Transmission Date: 20060501
  Serious: Yes (Hospitalization)
  Sender: FDA-Public Use
  Company Number: US-MERCK-0505USA00504

PATIENT
  Age: 64 Year
  Sex: Male

DRUGS (5)
  1. VIOXX [Suspect]
     Indication: ANALGESIC EFFECT
     Route: 048
     Dates: start: 20010101
  2. AMITRIPTYLINE HYDROCHLORIDE [Concomitant]
     Route: 048
  3. PRILOSEC [Concomitant]
     Route: 048
  4. ADVAIR DISKUS 100/50 [Concomitant]
     Route: 055
  5. FLOMAX [Concomitant]
     Route: 048

REACTIONS (9)
  - AGGRESSION [None]
  - ATRIAL FIBRILLATION [None]
  - BLOOD GLUCOSE INCREASED [None]
  - BLOOD PRESSURE INCREASED [None]
  - CONFUSIONAL STATE [None]
  - CORONARY ARTERY DISEASE [None]
  - MEDIASTINAL HAEMORRHAGE [None]
  - MYOCARDIAL INFARCTION [None]
  - OESOPHAGITIS [None]
